FAERS Safety Report 25131985 (Version 1)
Quarter: 2025Q1

REPORT INFORMATION
  Report Type: Spontaneous
  Country: NL (occurrence: NL)
  Receive Date: 20250327
  Receipt Date: 20250327
  Transmission Date: 20250409
  Serious: Yes (Life-Threatening)
  Sender: Haleon PLC
  Company Number: None

PATIENT
  Age: 52 Year
  Sex: Female
  Weight: 71 kg

DRUGS (1)
  1. NICOTINELL [Suspect]
     Active Substance: NICOTINE
     Indication: Smoking cessation therapy
     Dosage: 10 PIECES A DAY
     Route: 048
     Dates: start: 20250301, end: 20250312

REACTIONS (2)
  - Hypertension [Recovered/Resolved]
  - Palpitations [Recovered/Resolved]
